FAERS Safety Report 7597106-5 (Version None)
Quarter: 2011Q3

REPORT INFORMATION
  Report Type: 
  Country: None (occurrence: None)
  Receive Date: 20110708
  Receipt Date: 20110630
  Transmission Date: 20111222
  Serious: Yes (Hospitalization)
  Sender: FDA-Public Use
  Company Number: DE-TEVA-289435GER

PATIENT
  Age: 71 Year
  Sex: Male
  Weight: 76 kg

DRUGS (10)
  1. DEXAMETHASON-RATIOPAHRM [Suspect]
     Indication: MULTIPLE MYELOMA
     Dates: start: 20091216
  2. DEXAMETHASON-RATIOPAHRM [Suspect]
     Dates: start: 20110325
  3. PAMIDRONATE DISODIUM [Concomitant]
     Indication: PROPHYLAXIS
     Dosage: .1 MILLIGRAM;
     Route: 042
     Dates: start: 20091101
  4. LENALIDOMIDE [Suspect]
     Route: 048
     Dates: start: 20100225, end: 20100403
  5. LENALIDOMIDE [Suspect]
     Route: 048
     Dates: start: 20100325
  6. PANTOPRAZOLE [Concomitant]
     Indication: GASTRITIS PROPHYLAXIS
     Dosage: 40 MILLIGRAM;
     Route: 048
     Dates: start: 20091216
  7. AMPHOTERICIN B [Concomitant]
     Indication: PROPHYLAXIS
     Route: 048
     Dates: start: 20091216
  8. DEXAMETHASON-RATIOPAHRM [Suspect]
     Dates: start: 20100225, end: 20100303
  9. LENALIDOMIDE [Suspect]
     Indication: MULTIPLE MYELOMA
     Route: 048
     Dates: start: 20091216
  10. ENOXAPARIN SODIUM [Concomitant]
     Indication: THROMBOSIS PROPHYLAXIS
     Dosage: 40 MILLIGRAM;
     Route: 058
     Dates: start: 20091216

REACTIONS (1)
  - PNEUMONIA [None]
